FAERS Safety Report 10757983 (Version 1)
Quarter: 2015Q1

REPORT INFORMATION
  Report Type: Spontaneous
  Country: US (occurrence: US)
  Receive Date: 20150203
  Receipt Date: 20150203
  Transmission Date: 20150721
  Serious: No
  Sender: FDA-Public Use
  Company Number: US-TEVA-464816USA

PATIENT
  Sex: Female

DRUGS (2)
  1. ZOLOFT [Interacting]
     Active Substance: SERTRALINE HYDROCHLORIDE
     Dosage: 25 MILLIGRAM DAILY;
  2. MIRTAZAPINE. [Suspect]
     Active Substance: MIRTAZAPINE

REACTIONS (6)
  - Agitation [Unknown]
  - Crying [Unknown]
  - Tremor [Unknown]
  - Drug interaction [Unknown]
  - Palpitations [Unknown]
  - Gait disturbance [Unknown]
